FAERS Safety Report 20220039 (Version 1)
Quarter: 2021Q4

REPORT INFORMATION
  Report Type: Spontaneous
  Country: US (occurrence: US)
  Receive Date: 20211222
  Receipt Date: 20211222
  Transmission Date: 20220304
  Serious: Yes (Other)
  Sender: FDA-Public Use
  Company Number: US-BEH-2021139763

PATIENT
  Age: 69 Year
  Sex: Male
  Weight: 76.5 kg

DRUGS (1)
  1. HIZENTRA [Suspect]
     Active Substance: HUMAN IMMUNOGLOBULIN G
     Indication: Immunodeficiency common variable
     Dosage: 20 GRAM, QOW
     Route: 058

REACTIONS (4)
  - Infusion site erythema [Unknown]
  - Infusion site urticaria [Unknown]
  - Infusion site warmth [Unknown]
  - Infusion related reaction [Unknown]
